FAERS Safety Report 10461141 (Version 2)
Quarter: 2014Q3

REPORT INFORMATION
  Report Type: Spontaneous
  Country: JP (occurrence: JP)
  Receive Date: 20140918
  Receipt Date: 20140918
  Transmission Date: 20150326
  Serious: Yes (Hospitalization, Other)
  Sender: FDA-Public Use
  Company Number: JP-CELGENEUS-087-21880-14071179

PATIENT
  Age: 69 Year
  Sex: Male
  Weight: 57.3 kg

DRUGS (82)
  1. VELCADE [Suspect]
     Active Substance: BORTEZOMIB
     Dosage: 1.85 MILLILITER
     Route: 041
     Dates: start: 20130304, end: 20130311
  2. CLARITH [Concomitant]
     Active Substance: CLARITHROMYCIN
     Indication: PLASMA CELL MYELOMA RECURRENT
     Dosage: 800 MILLIGRAM
     Route: 048
     Dates: start: 20130227, end: 20130330
  3. VANCOMYCIN [Concomitant]
     Active Substance: VANCOMYCIN
     Indication: INFECTION
     Dosage: 2 GRAM
     Route: 041
     Dates: start: 20130226, end: 20130328
  4. NEUART [Concomitant]
     Indication: ANTITHROMBIN III DEFICIENCY
     Dosage: 500 UNITS
     Route: 041
     Dates: start: 20130225, end: 20130323
  5. ALBUMIN [Concomitant]
     Active Substance: ALBUMIN (HUMAN)
     Dosage: 50 MILLILITER
     Route: 041
     Dates: start: 20130307, end: 20130307
  6. DAIMEDIN [Concomitant]
     Indication: HYPOVITAMINOSIS
     Route: 041
     Dates: start: 20130313, end: 20130318
  7. CONCENTRATED RED CELLS [Concomitant]
     Active Substance: HUMAN RED BLOOD CELL
     Indication: PLASMA CELL MYELOMA
     Dosage: 2 UNITS
     Route: 041
     Dates: start: 20130225, end: 20130227
  8. CONCENTRATED RED CELLS [Concomitant]
     Active Substance: HUMAN RED BLOOD CELL
     Dosage: 2 UNITS
     Route: 041
     Dates: start: 20130311, end: 20130311
  9. PLATELET [Concomitant]
     Dosage: 10 UNITS
     Route: 041
     Dates: start: 20130314, end: 20130314
  10. PURSENNID [Concomitant]
     Active Substance: SENNOSIDES A AND B CALCIUM
     Indication: CONSTIPATION
     Dosage: 12 MILLIGRAM
     Route: 048
     Dates: start: 20130316, end: 20130318
  11. BAYASPIRIN [Concomitant]
     Active Substance: ASPIRIN
     Indication: THROMBOSIS PROPHYLAXIS
     Dosage: 100 MILLIGRAM
     Route: 048
     Dates: start: 20130304, end: 20130317
  12. SULFAMETHOXAZOLE AND TRIMETHOPRIM [Concomitant]
     Active Substance: SULFAMETHOXAZOLE\TRIMETHOPRIM
     Indication: ANTIFUNGAL PROPHYLAXIS
     Route: 048
     Dates: start: 20130302, end: 20130321
  13. LASIX [Concomitant]
     Active Substance: FUROSEMIDE
     Indication: CARDIAC FAILURE
     Dosage: 6 MILLILITER
     Route: 041
     Dates: start: 20130225, end: 20130330
  14. GLUCOSE [Concomitant]
     Active Substance: DEXTROSE
     Indication: MALNUTRITION
     Dosage: 300 MILLILITER
     Route: 041
     Dates: start: 20130226, end: 20130302
  15. SOLDEM 6 [Concomitant]
     Indication: MALNUTRITION
     Dosage: 1000 MILLILITER
     Route: 041
     Dates: start: 20130315, end: 20130316
  16. CONCENTRATED RED CELLS [Concomitant]
     Active Substance: HUMAN RED BLOOD CELL
     Dosage: 2 UNITS
     Route: 041
     Dates: start: 20130315, end: 20130315
  17. PLATELET [Concomitant]
     Indication: PLASMA CELL MYELOMA
     Dosage: 10 UNITS
     Route: 041
     Dates: start: 20130303, end: 20130303
  18. ALOSITOL [Concomitant]
     Active Substance: ALLOPURINOL
     Indication: HYPERURICAEMIA
     Dosage: 400 MILLIGRAM
     Route: 048
     Dates: start: 20130227, end: 20130228
  19. URSO [Concomitant]
     Active Substance: URSODIOL
     Indication: LIVER DISORDER
     Dosage: 600 MILLIGRAM
     Route: 048
     Dates: start: 20130302, end: 20130330
  20. ITRIZOLE [Concomitant]
     Active Substance: ITRACONAZOLE
     Indication: ANTIVIRAL PROPHYLAXIS
     Dosage: 20 MILLILITER
     Route: 048
     Dates: start: 20130305, end: 20130330
  21. DUROTEP [Concomitant]
     Active Substance: FENTANYL
     Indication: CANCER PAIN
     Dosage: 4.2 MILLIGRAM
     Route: 062
     Dates: start: 20130226, end: 20130330
  22. TWINPAL [Concomitant]
     Dosage: 500 MILLILITER
     Route: 041
     Dates: start: 20130305, end: 20130312
  23. INTRALIPOS [Concomitant]
     Active Substance: SOYBEAN OIL
     Indication: MALNUTRITION
     Dosage: 150 MILLILITER
     Route: 041
     Dates: start: 20130227, end: 20130228
  24. SOLDEM 3A [Concomitant]
     Active Substance: CARBOHYDRATES\POTASSIUM CHLORIDE\SODIUM CHLORIDE\SODIUM LACTATE
     Indication: MALNUTRITION
     Dosage: 1000 MILLILITER
     Route: 041
     Dates: start: 20130320, end: 20130329
  25. ALBUMIN [Concomitant]
     Active Substance: ALBUMIN (HUMAN)
     Indication: HYPOALBUMINAEMIA
     Dosage: 50 MILLILITER
     Route: 041
     Dates: start: 20130225, end: 20130301
  26. AMIPAREN [Concomitant]
     Indication: MALNUTRITION
     Dosage: 300 MILLILITER
     Route: 041
     Dates: start: 20130313, end: 20130318
  27. CONCENTRATED RED CELLS [Concomitant]
     Active Substance: HUMAN RED BLOOD CELL
     Dosage: 2 UNITS
     Route: 041
     Dates: start: 20130302, end: 20130302
  28. CONCENTRATED RED CELLS [Concomitant]
     Active Substance: HUMAN RED BLOOD CELL
     Dosage: 2 UNITS
     Route: 041
     Dates: start: 20130326, end: 20130326
  29. PLATELET [Concomitant]
     Dosage: 10 UNITS
     Route: 041
     Dates: start: 20130308, end: 20130308
  30. REVLIMID [Suspect]
     Active Substance: LENALIDOMIDE
     Dosage: 10 MILLIGRAM
     Route: 048
     Dates: start: 20130413, end: 20130422
  31. LENADEX [Suspect]
     Active Substance: DEXAMETHASONE ACETATE
     Dosage: 20 MILLIGRAM
     Route: 048
     Dates: start: 20130314, end: 20130315
  32. ENSURE [Concomitant]
     Active Substance: AMINO ACIDS\DEXTROSE\ELECTROLYTES NOS\SOYBEAN OIL\VITAMINS
     Dosage: 250 MILLILITER
     Route: 048
     Dates: start: 20130316, end: 20130318
  33. MAGLAX [Concomitant]
     Active Substance: MAGNESIUM OXIDE
     Indication: CONSTIPATION
     Dosage: 1500 MILLIGRAM
     Route: 048
     Dates: start: 20130301, end: 20130330
  34. SOLDEM 1 [Concomitant]
     Indication: MALNUTRITION
     Dosage: 1000 MILLILITER
     Route: 041
     Dates: start: 20130225, end: 20130316
  35. MEROPEN [Concomitant]
     Active Substance: MEROPENEM
     Indication: INFECTION
     Dosage: 2000 MILLIGRAM
     Route: 041
     Dates: start: 20130225, end: 20130330
  36. ALBUMIN [Concomitant]
     Active Substance: ALBUMIN (HUMAN)
     Dosage: 50 MILLILITER
     Route: 041
     Dates: start: 20130303, end: 20130303
  37. FULCALIQ [Concomitant]
     Active Substance: AMINO ACIDS\CARBOHYDRATES\ELECTROLYTES NOS\VITAMINS
     Indication: MALNUTRITION
     Dosage: 903 MILLILITER
     Route: 041
     Dates: start: 20130319, end: 20130319
  38. ORGARAN [Concomitant]
     Active Substance: DANAPAROID SODIUM
     Indication: DISSEMINATED INTRAVASCULAR COAGULATION
     Dosage: 2 MILLILITER
     Route: 041
     Dates: start: 20130313, end: 20130315
  39. GRAN [Concomitant]
     Active Substance: FILGRASTIM
     Indication: NEUTROPENIA
     Dosage: .3 MILLILITER
     Route: 058
     Dates: start: 20130318, end: 20130328
  40. CONCENTRATED RED CELLS [Concomitant]
     Active Substance: HUMAN RED BLOOD CELL
     Dosage: 2 UNITS
     Route: 041
     Dates: start: 20130318, end: 20130319
  41. CONCENTRATED RED CELLS [Concomitant]
     Active Substance: HUMAN RED BLOOD CELL
     Dosage: 2 UNITS
     Route: 041
     Dates: start: 20130329, end: 20130329
  42. PLATELET [Concomitant]
     Dosage: 10 UNITS
     Route: 041
     Dates: start: 20130323, end: 20130323
  43. VELCADE [Suspect]
     Active Substance: BORTEZOMIB
     Indication: PLASMA CELL MYELOMA RECURRENT
     Route: 065
     Dates: start: 20111115, end: 201201
  44. VICCLOX [Concomitant]
     Active Substance: ACYCLOVIR SODIUM
     Indication: ANTIVIRAL PROPHYLAXIS
     Dosage: 400 MILLIGRAM
     Route: 048
     Dates: start: 20130226, end: 20130330
  45. FUNGUARD [Concomitant]
     Active Substance: MICAFUNGIN SODIUM
     Indication: INFECTION
     Dosage: 150 MILLIGRAM
     Route: 041
     Dates: start: 20130225, end: 20130302
  46. ALBUMIN [Concomitant]
     Active Substance: ALBUMIN (HUMAN)
     Dosage: 50 MILLILITER
     Route: 041
     Dates: start: 20130313, end: 20130313
  47. PLATELET [Concomitant]
     Dosage: 20 UNITS
     Route: 041
     Dates: start: 20130313, end: 20130313
  48. PLATELET [Concomitant]
     Dosage: 10 UNITS
     Route: 041
     Dates: start: 20130316, end: 20130316
  49. LENADEX [Suspect]
     Active Substance: DEXAMETHASONE ACETATE
     Dosage: 20 MILLIGRAM
     Route: 048
     Dates: start: 20130311, end: 20130312
  50. VELCADE [Suspect]
     Active Substance: BORTEZOMIB
     Dosage: 1.8 MILLIGRAM
     Route: 041
     Dates: start: 20130409, end: 20130409
  51. NEXIUM [Concomitant]
     Active Substance: ESOMEPRAZOLE MAGNESIUM
     Indication: GASTRIC ULCER
     Dosage: 20 MILLIGRAM
     Route: 048
     Dates: start: 20130226, end: 20130330
  52. OXINORM [Concomitant]
     Active Substance: OXYCODONE HYDROCHLORIDE
     Indication: CANCER PAIN
     Dosage: 5 MILLIGRAM
     Route: 048
     Dates: start: 20130226, end: 20130228
  53. CRAVIT [Concomitant]
     Active Substance: LEVOFLOXACIN
     Indication: INFECTION
     Dosage: 500 MILLIGRAM
     Route: 048
     Dates: start: 20130313, end: 20130319
  54. TWINPAL [Concomitant]
     Indication: MALNUTRITION
     Dosage: 1 LITERS
     Route: 041
     Dates: start: 20130227, end: 20130304
  55. AMIKACIN SULFATE. [Concomitant]
     Active Substance: AMIKACIN SULFATE
     Indication: INFECTION
     Dosage: 400 MILLIGRAM
     Route: 041
     Dates: start: 20130227, end: 20130302
  56. ALBUMIN [Concomitant]
     Active Substance: ALBUMIN (HUMAN)
     Dosage: 100 MILLILITER
     Route: 041
     Dates: start: 20130314, end: 20130314
  57. HICALIQ RF [Concomitant]
     Indication: MALNUTRITION
     Dosage: 500 MILLILITER
     Route: 041
     Dates: start: 20130313, end: 20130318
  58. CONCENTRATED RED CELLS [Concomitant]
     Active Substance: HUMAN RED BLOOD CELL
     Dosage: 2 UNITS
     Route: 041
     Dates: start: 20130321, end: 20130321
  59. PLATELET [Concomitant]
     Dosage: 10 UNITS
     Route: 041
     Dates: start: 20130306, end: 20130306
  60. PLATELET [Concomitant]
     Dosage: 15 UNITS
     Route: 041
     Dates: start: 20130320, end: 20130320
  61. REVLIMID [Suspect]
     Active Substance: LENALIDOMIDE
     Indication: PLASMA CELL MYELOMA RECURRENT
     Route: 048
     Dates: start: 20121103, end: 201212
  62. ENSURE [Concomitant]
     Active Substance: AMINO ACIDS\DEXTROSE\ELECTROLYTES NOS\SOYBEAN OIL\VITAMINS
     Indication: MALNUTRITION
     Dosage: 500 MILLILITER
     Route: 048
     Dates: start: 20130226, end: 20130313
  63. VITAMEDIN [Concomitant]
     Active Substance: CYANOCOBALAMIN\PYRIDOXINE HYDROCHLORIDE\THIAMINE
     Indication: HYPOVITAMINOSIS
     Route: 041
     Dates: start: 20130226, end: 20130312
  64. SOLDEM 1 [Concomitant]
     Dosage: 1000 MILLILITER
     Route: 041
     Dates: start: 20130313, end: 20130316
  65. XYLOCAINE [Concomitant]
     Active Substance: LIDOCAINE HYDROCHLORIDE
     Indication: PRODUCT USED FOR UNKNOWN INDICATION
     Dosage: 20 MILLILITER
     Route: 058
     Dates: start: 20130313, end: 20130313
  66. OMEPRAL [Concomitant]
     Active Substance: OMEPRAZOLE
     Indication: GASTRIC ULCER
     Dosage: 40 MILLIGRAM
     Route: 041
     Dates: start: 20130313, end: 20130319
  67. ASPARA POTASSIUM [Concomitant]
     Active Substance: POTASSIUM ASPARTATE
     Indication: HYPOKALAEMIA
     Dosage: 20 MILLILITER
     Route: 041
     Dates: start: 20130322, end: 20130329
  68. HEPARIN [Concomitant]
     Active Substance: HEPARIN SODIUM
     Indication: PRODUCT USED FOR UNKNOWN INDICATION
     Dosage: 5 MILLILITER
     Route: 041
     Dates: start: 20130313, end: 20130313
  69. HEPARIN N5 [Concomitant]
     Indication: PRODUCT USED FOR UNKNOWN INDICATION
     Dosage: 5 MILLILITER
     Route: 041
     Dates: start: 20130313, end: 20130313
  70. POLARAMINE [Concomitant]
     Active Substance: DEXCHLORPHENIRAMINE MALEATE
     Indication: ALLERGY PROPHYLAXIS
     Dosage: 1 MILLILITER
     Route: 041
     Dates: start: 20130303, end: 20130330
  71. CONCENTRATED RED CELLS [Concomitant]
     Active Substance: HUMAN RED BLOOD CELL
     Dosage: 2 UNITS
     Route: 041
     Dates: start: 20130313, end: 20130313
  72. PLATELET [Concomitant]
     Dosage: 10 UNITS
     Route: 041
     Dates: start: 20130311, end: 20130312
  73. PLATELET [Concomitant]
     Dosage: 10 UNITS
     Route: 041
     Dates: start: 20130318, end: 20130319
  74. PLATELET [Concomitant]
     Dosage: 10 UNITS
     Route: 041
     Dates: start: 20130325, end: 20130325
  75. ENSURE H [Concomitant]
     Indication: MALNUTRITION
     Dosage: 250 MILLILITER
     Route: 048
     Dates: start: 20130315, end: 20130321
  76. FLAGYL [Concomitant]
     Active Substance: METRONIDAZOLE\METRONIDAZOLE HYDROCHLORIDE
     Indication: PRODUCT USED FOR UNKNOWN INDICATION
     Dosage: 750 MILLIGRAM
     Route: 048
     Dates: start: 20130313, end: 20130325
  77. HUMULIN NOS [Concomitant]
     Active Substance: INSULIN HUMAN
     Indication: HYPERGLYCAEMIA
     Dosage: .1 MILLILITER
     Route: 058
     Dates: start: 20130305, end: 20130319
  78. NEO-MINOPHAGEN C [Concomitant]
     Active Substance: AMMONIUM GLYCYRRHIZATE
     Indication: HEPATIC FUNCTION ABNORMAL
     Dosage: 60 MILLILITER
     Route: 041
     Dates: start: 20130301, end: 20130319
  79. DECADRON [Concomitant]
     Active Substance: DEXAMETHASONE
     Indication: PRODUCT USED FOR UNKNOWN INDICATION
     Dosage: 6.6 MILLIGRAM
     Route: 065
     Dates: start: 20130227, end: 20130302
  80. REVLIMID [Suspect]
     Active Substance: LENALIDOMIDE
     Dosage: 10 MILLIGRAM
     Route: 048
     Dates: start: 20130304, end: 20130310
  81. LENADEX [Suspect]
     Active Substance: DEXAMETHASONE ACETATE
     Indication: PLASMA CELL MYELOMA RECURRENT
     Dosage: 20 MILLIGRAM
     Route: 048
     Dates: start: 20130304, end: 20130305
  82. LENADEX [Suspect]
     Active Substance: DEXAMETHASONE ACETATE
     Dosage: 20 MILLIGRAM
     Route: 048
     Dates: start: 20130307, end: 20130308

REACTIONS (6)
  - Tumour lysis syndrome [Recovering/Resolving]
  - Hypokalaemia [Unknown]
  - Disseminated intravascular coagulation [Unknown]
  - Pseudomembranous colitis [Unknown]
  - Hyperglycaemia [Recovering/Resolving]
  - Neutropenia [Unknown]

NARRATIVE: CASE EVENT DATE: 20130304
